FAERS Safety Report 10176810 (Version 3)
Quarter: 2014Q4

REPORT INFORMATION
  Report Type: Spontaneous
  Country: US (occurrence: US)
  Receive Date: 20140516
  Receipt Date: 20141020
  Transmission Date: 20150528
  Serious: Yes (Hospitalization, Other)
  Sender: FDA-Public Use
  Company Number: US-BAYER-2014-072449

PATIENT
  Age: 28 Year
  Sex: Female
  Weight: 50 kg

DRUGS (4)
  1. IBUPROFEN. [Concomitant]
     Active Substance: IBUPROFEN
     Indication: PAIN
  2. PROAIR HFA [Concomitant]
     Active Substance: ALBUTEROL SULFATE
     Dosage: 2 PUFFS EVERY 4-6 HRS. AS NEEDED
  3. XOPENEX [Concomitant]
     Active Substance: LEVALBUTEROL HYDROCHLORIDE
     Dosage: 45 MCG/ACT, 1-2 PUFFS EVERY 6 HOURS AS NEEDED.
  4. MIRENA [Suspect]
     Active Substance: LEVONORGESTREL
     Indication: CONTRACEPTION
     Dosage: 20 MCG/24HR, CONT
     Route: 015
     Dates: start: 20100717, end: 20130416

REACTIONS (12)
  - Activities of daily living impaired [None]
  - Uterine perforation [None]
  - Medical device complication [None]
  - Expired device used [None]
  - Menorrhagia [None]
  - Metrorrhagia [None]
  - Emotional distress [None]
  - Fear [None]
  - Device issue [None]
  - Injury [None]
  - Pain [None]
  - Genital haemorrhage [None]

NARRATIVE: CASE EVENT DATE: 2010
